FAERS Safety Report 4331064-1 (Version None)
Quarter: 2004Q2

REPORT INFORMATION
  Report Type: 
  Country: None (occurrence: None)
  Receive Date: 20040405
  Receipt Date: 20040329
  Transmission Date: 20050107
  Serious: Yes (Life-Threatening, Hospitalization)
  Sender: FDA-Public Use
  Company Number: PHFR2004GB01566

PATIENT
  Age: 57 Year
  Sex: Female
  Weight: 63 kg

DRUGS (3)
  1. DIOVAN [Suspect]
     Indication: HYPERTENSION
     Dosage: 80 MG, QD
     Route: 048
     Dates: end: 20030310
  2. AMLODIPINE [Suspect]
     Dosage: 10 MG, QD
     Route: 065
  3. RABEPRAZOLE SODIUM [Suspect]
     Dosage: 20 MG, QD
     Route: 065

REACTIONS (6)
  - BLOOD AMYLASE INCREASED [None]
  - BLOOD CREATININE INCREASED [None]
  - BLOOD UREA INCREASED [None]
  - DEHYDRATION [None]
  - PANCREATITIS [None]
  - RENAL IMPAIRMENT [None]
